FAERS Safety Report 20170235 (Version 1)
Quarter: 2021Q4

REPORT INFORMATION
  Report Type: Spontaneous
  Country: AU (occurrence: AU)
  Receive Date: 20211210
  Receipt Date: 20211210
  Transmission Date: 20220303
  Serious: Yes (Other)
  Sender: FDA-Public Use
  Company Number: AU-NOVARTISPH-NVSC2021AU280529

PATIENT
  Age: 72 Year
  Sex: Female

DRUGS (1)
  1. DOXYCYCLINE [Suspect]
     Active Substance: DOXYCYCLINE
     Indication: Product used for unknown indication
     Dosage: 100 MG, QD (AFTER FOOD AND STAY UPRIGHT)
     Route: 065
     Dates: start: 20211127

REACTIONS (7)
  - Rectal haemorrhage [Not Recovered/Not Resolved]
  - Product dose omission issue [Unknown]
  - Impaired gastric emptying [Unknown]
  - Polyuria [Unknown]
  - Illness [Unknown]
  - Nausea [Unknown]
  - Cough [Unknown]

NARRATIVE: CASE EVENT DATE: 20211129
